FAERS Safety Report 20101637 (Version 3)
Quarter: 2021Q4

REPORT INFORMATION
  Report Type: Report from Study
  Country: US (occurrence: US)
  Receive Date: 20211123
  Receipt Date: 20211214
  Transmission Date: 20220303
  Serious: Yes (Hospitalization)
  Sender: FDA-Public Use
  Company Number: US-TG THERAPEUTICS INC.-TGT002248

PATIENT
  Age: 69 Year
  Sex: Female
  Weight: 74.8 kg

DRUGS (2)
  1. UBLITUXIMAB [Suspect]
     Active Substance: UBLITUXIMAB
     Indication: Chronic lymphocytic leukaemia
     Dosage: 900 MILLIGRAM PER PROTOCOL
     Dates: start: 20210518, end: 20211004
  2. UMBRALISIB [Suspect]
     Active Substance: UMBRALISIB
     Indication: Chronic lymphocytic leukaemia
     Dosage: 800 MILLIGRAM, QD
     Dates: start: 20210518, end: 20211115

REACTIONS (2)
  - COVID-19 [Not Recovered/Not Resolved]
  - COVID-19 pneumonia [Unknown]

NARRATIVE: CASE EVENT DATE: 20211111
